FAERS Safety Report 5161340-4 (Version None)
Quarter: 2006Q4

REPORT INFORMATION
  Report Type: 
  Country: None (occurrence: None)
  Receive Date: 20061121
  Receipt Date: 20061108
  Transmission Date: 20070319
  Serious: Yes (Life-Threatening, Other)
  Sender: FDA-Public Use
  Company Number: 2006139157

PATIENT
  Sex: Female
  Weight: 70 kg

DRUGS (4)
  1. METHYLPREDNISOLONE SODIUM SUCCINATE [Suspect]
     Dosage: (500 MG), INTRAVENOUS
     Route: 042
     Dates: start: 20061004, end: 20061004
  2. ESTRADERM [Concomitant]
  3. FISH OIL (FISH OIL) [Concomitant]
  4. LEVOTHYROXINE SODIUM [Concomitant]

REACTIONS (6)
  - BALANCE DISORDER [None]
  - CONFUSIONAL STATE [None]
  - DYSGEUSIA [None]
  - INFUSION RELATED REACTION [None]
  - SYNCOPE [None]
  - TACHYCARDIA [None]
